FAERS Safety Report 18531859 (Version 2)
Quarter: 2020Q4

REPORT INFORMATION
  Report Type: Report from Study
  Country: AU (occurrence: AU)
  Receive Date: 20201123
  Receipt Date: 20201218
  Transmission Date: 20210114
  Serious: Yes (Hospitalization)
  Sender: FDA-Public Use
  Company Number: AU-ROCHE-2689183

PATIENT
  Age: 74 Year
  Sex: Female
  Weight: 55.6 kg

DRUGS (16)
  1. OXYCODONE [Concomitant]
     Active Substance: OXYCODONE
     Route: 048
     Dates: start: 20200924
  2. MOSUNETUZUMAB. [Suspect]
     Active Substance: MOSUNETUZUMAB
     Indication: CHRONIC LYMPHOCYTIC LEUKAEMIA
  3. PREDNISONE. [Concomitant]
     Active Substance: PREDNISONE
     Indication: TUMOUR FLARE
     Route: 048
     Dates: start: 20200924, end: 20200928
  4. TOCILIZUMAB. [Suspect]
     Active Substance: TOCILIZUMAB
     Indication: NON-HODGKIN^S LYMPHOMA
     Dosage: DOSE OF LAST TOCILIZUMAB ADMINISTERED 400 MG?DATE OF MOST RECENT DOSE OF TOCILIZUMAB PRIOR TO AE ONS
     Route: 042
  5. NALOXONE [Concomitant]
     Active Substance: NALOXONE
     Route: 048
     Dates: start: 20200924
  6. FILGRASTIM [Concomitant]
     Active Substance: FILGRASTIM
     Indication: NEUTROPENIA
     Route: 058
     Dates: start: 20200701
  7. BETAMETHASONE DIPROPIONATE. [Concomitant]
     Active Substance: BETAMETHASONE DIPROPIONATE
     Indication: INJECTION SITE RASH
     Route: 061
     Dates: start: 20200924, end: 20200930
  8. MOSUNETUZUMAB. [Suspect]
     Active Substance: MOSUNETUZUMAB
     Indication: NON-HODGKIN^S LYMPHOMA
     Dosage: DATE OF MOST RECENT DOSE OF MOSUNETUZUMAB (45 MG) PRIOR TO SECOND EPISODE OF CYTOKINE RELEASE SYNDRO
     Route: 058
     Dates: start: 20200922
  9. VALACICLOVIR [Concomitant]
     Active Substance: VALACYCLOVIR HYDROCHLORIDE
     Route: 048
     Dates: start: 20200601
  10. PROPANOLOL [Concomitant]
     Active Substance: PROPRANOLOL HYDROCHLORIDE
     Indication: HYPERTENSION
     Route: 048
     Dates: start: 20200601
  11. OXYCODONE [Concomitant]
     Active Substance: OXYCODONE
     Route: 048
     Dates: start: 20200821, end: 20200924
  12. OXYCODONE [Concomitant]
     Active Substance: OXYCODONE
     Indication: PAIN
     Route: 048
     Dates: start: 20200821, end: 20200924
  13. OXYCODONE [Concomitant]
     Active Substance: OXYCODONE
     Route: 048
     Dates: start: 20200924
  14. NALOXONE [Concomitant]
     Active Substance: NALOXONE
     Indication: PAIN
     Route: 048
     Dates: start: 20200821, end: 20200924
  15. ALLOPURINOL. [Concomitant]
     Active Substance: ALLOPURINOL
     Route: 048
     Dates: start: 20200922, end: 20201006
  16. AMITRIPTYLINE [Concomitant]
     Active Substance: AMITRIPTYLINE
     Route: 048
     Dates: start: 20200601

REACTIONS (2)
  - Cytokine release syndrome [Recovered/Resolved]
  - Pain [Recovered/Resolved]

NARRATIVE: CASE EVENT DATE: 20201001
